FAERS Safety Report 9356699 (Version 3)
Quarter: 2014Q1

REPORT INFORMATION
  Report Type: Spontaneous
  Country: US (occurrence: US)
  Receive Date: 20130619
  Receipt Date: 20140221
  Transmission Date: 20141002
  Serious: Yes (Hospitalization, Other)
  Sender: FDA-Public Use
  Company Number: US-B.I. PHARMACEUTICALS,INC./RIDGEFIELD-2013-BI-17205BP

PATIENT
  Age: 72 Year
  Sex: Female
  Weight: 70.31 kg

DRUGS (11)
  1. PRADAXA [Suspect]
     Indication: ATRIAL FIBRILLATION
     Dosage: 300 MG
     Route: 048
     Dates: start: 20110601, end: 20111017
  2. PRADAXA [Suspect]
     Dosage: 300 MG
     Route: 048
     Dates: start: 20111024, end: 20120209
  3. LASIX [Concomitant]
     Dosage: 80 MG
     Route: 048
  4. LOVASTATIN [Concomitant]
  5. LEVOTHYROXINE [Concomitant]
     Dosage: 0.1 MG
     Route: 048
  6. OMEPRAZOLE [Concomitant]
     Dosage: 40 MG
     Route: 048
  7. SIMETHICONE [Concomitant]
  8. NITROGLYCERINE [Concomitant]
     Route: 060
  9. POTASSIUM [Concomitant]
     Dosage: 7.5 ML
  10. FIBERCON [Concomitant]
     Dosage: 1250 MG
     Route: 048
  11. LISINOPRIL [Concomitant]
     Dosage: 10 MG
     Route: 048

REACTIONS (4)
  - Gastrointestinal haemorrhage [Recovered/Resolved]
  - Coagulopathy [Unknown]
  - Chest pain [Recovered/Resolved]
  - Gastrointestinal haemorrhage [Recovered/Resolved]
